FAERS Safety Report 8857741 (Version 1)
Quarter: 2012Q4

REPORT INFORMATION
  Report Type: 
  Country: US (occurrence: US)
  Receive Date: 20121024
  Receipt Date: 20121024
  Transmission Date: 20130627
  Serious: Yes (Hospitalization)
  Sender: FDA-Public Use
  Company Number: US-ACTELION-A-CH2012-72899

PATIENT
  Age: 8 Year
  Sex: Female

DRUGS (6)
  1. TRACLEER [Suspect]
     Indication: PULMONARY ARTERIAL HYPERTENSION
     Route: 048
  2. BUDESONIDE [Concomitant]
  3. WARFARIN [Concomitant]
  4. DIGOXIN [Concomitant]
  5. TREPROSTINIL [Concomitant]
  6. SILDENAFIL [Concomitant]

REACTIONS (6)
  - Acquired Von Willebrand^s disease [Unknown]
  - Pulmonary hypertension [Unknown]
  - Epistaxis [Unknown]
  - Haematemesis [Unknown]
  - Haemoglobin decreased [Unknown]
  - Menorrhagia [Unknown]
